FAERS Safety Report 10634738 (Version 1)
Quarter: 2014Q4

REPORT INFORMATION
  Report Type: Spontaneous
  Country: FR (occurrence: FR)
  Receive Date: 20141205
  Receipt Date: 20141205
  Transmission Date: 20150529
  Serious: Yes (Death)
  Sender: FDA-Public Use
  Company Number: FR-SA-2014SA167575

PATIENT
  Age: 74 Year
  Sex: Male

DRUGS (4)
  1. RULID [Suspect]
     Active Substance: ROXITHROMYCIN
     Indication: TONSILLITIS
     Route: 048
     Dates: start: 20141120, end: 20141122
  2. FLUVASTATIN [Suspect]
     Active Substance: FLUVASTATIN SODIUM
     Route: 048
  3. INEXIUM [Suspect]
     Active Substance: ESOMEPRAZOLE
     Route: 048
  4. COAPROVEL [Suspect]
     Active Substance: HYDROCHLOROTHIAZIDE\IRBESARTAN
     Route: 048

REACTIONS (1)
  - Malaise [Fatal]

NARRATIVE: CASE EVENT DATE: 20141122
